FAERS Safety Report 25042027 (Version 2)
Quarter: 2025Q3

REPORT INFORMATION
  Report Type: Spontaneous
  Country: US (occurrence: US)
  Receive Date: 20250305
  Receipt Date: 20250908
  Transmission Date: 20251021
  Serious: Yes (Other)
  Sender: BIOVITRUM
  Company Number: US-BIOVITRUM-2025-US-002916

PATIENT
  Age: 49 Year
  Sex: Male

DRUGS (2)
  1. DOPTELET [Suspect]
     Active Substance: AVATROMBOPAG MALEATE
     Indication: Immune thrombocytopenia
     Route: 048
     Dates: start: 2024
  2. DOPTELET [Suspect]
     Active Substance: AVATROMBOPAG MALEATE
     Route: 048
     Dates: start: 2024

REACTIONS (5)
  - Deep vein thrombosis [Unknown]
  - Microembolism [Unknown]
  - Blue toe syndrome [Unknown]
  - Incorrect dose administered [Unknown]
  - Adverse event [Unknown]
